FAERS Safety Report 17861934 (Version 1)
Quarter: 2020Q2

REPORT INFORMATION
  Report Type: Spontaneous
  Country: IN (occurrence: IN)
  Receive Date: 20200604
  Receipt Date: 20200604
  Transmission Date: 20200714
  Serious: Yes (Hospitalization)
  Sender: FDA-Public Use
  Company Number: IN-MEITHEAL PHARMACEUTICALS-2020MHL00019

PATIENT
  Age: 12 Year
  Sex: Male

DRUGS (5)
  1. CYTARABINE. [Suspect]
     Active Substance: CYTARABINE
     Dosage: 100 MG/M2, 2X/DAY (EVERY 12 HOURS)
     Route: 065
  2. CYTARABINE. [Suspect]
     Active Substance: CYTARABINE
     Dosage: 100 MG/M2, 2X/DAY (EVERY 12 HOURS)
     Route: 065
  3. CYTARABINE. [Suspect]
     Active Substance: CYTARABINE
     Dosage: 300 MG/M2 EVERY 12 HOURS FOR 2 CYCLES ON DAYS 1,3, AND 5)
     Route: 065
     Dates: end: 201801
  4. ETOPOSIDE. [Concomitant]
     Active Substance: ETOPOSIDE
     Route: 065
  5. DAUNORUBICIN [Concomitant]
     Active Substance: DAUNORUBICIN
     Route: 065

REACTIONS (2)
  - Cardiac tamponade [Recovered/Resolved]
  - Pericardial effusion [Recovered/Resolved]
